FAERS Safety Report 15563365 (Version 1)
Quarter: 2018Q4

REPORT INFORMATION
  Report Type: Spontaneous
  Country: CA (occurrence: CA)
  Receive Date: 20181029
  Receipt Date: 20181029
  Transmission Date: 20190205
  Serious: Yes (Death)
  Sender: FDA-Public Use
  Company Number: CA-ACTELION-A-NJ2018-180539

PATIENT
  Age: 68 Year
  Sex: Female

DRUGS (11)
  1. SALBUTAMOL [Concomitant]
     Active Substance: ALBUTEROL
  2. TRACLEER [Suspect]
     Active Substance: BOSENTAN
     Indication: PULMONARY ARTERIAL HYPERTENSION
     Dosage: 125 MG, UNK
     Route: 048
     Dates: start: 20170828, end: 20181004
  3. DILTIAZEM. [Concomitant]
     Active Substance: DILTIAZEM
  4. FUROSEMIDE. [Concomitant]
     Active Substance: FUROSEMIDE
  5. DIGOXIN. [Concomitant]
     Active Substance: DIGOXIN
  6. ZAROXOLYN [Concomitant]
     Active Substance: METOLAZONE
  7. APO K [Concomitant]
     Active Substance: POTASSIUM
  8. ESOMEPRAZOLE. [Concomitant]
     Active Substance: ESOMEPRAZOLE MAGNESIUM
  9. CIPROFLOXACIN. [Concomitant]
     Active Substance: CIPROFLOXACIN
     Dosage: 0.3 %, UNK
     Route: 047
  10. WARFARIN [Concomitant]
     Active Substance: WARFARIN
  11. SPIRONOLACTONE. [Concomitant]
     Active Substance: SPIRONOLACTONE

REACTIONS (2)
  - Disease progression [Fatal]
  - Pulmonary hypertension [Fatal]
